FAERS Safety Report 16353112 (Version 1)
Quarter: 2019Q2

REPORT INFORMATION
  Report Type: Spontaneous
  Country: US (occurrence: US)
  Receive Date: 20190524
  Receipt Date: 20190524
  Transmission Date: 20190711
  Serious: No
  Sender: FDA-Public Use
  Company Number: US-PFIZER INC-2013366231

PATIENT
  Age: 74 Year
  Sex: Male
  Weight: 86.17 kg

DRUGS (2)
  1. GENOTROPIN MQ [Suspect]
     Active Substance: SOMATROPIN
     Indication: PITUITARY TUMOUR
     Dosage: 0.2 MG, 1X/DAY
     Dates: start: 2003
  2. GENOTROPIN MQ [Suspect]
     Active Substance: SOMATROPIN
     Indication: PITUITARY GLAND OPERATION

REACTIONS (1)
  - Insomnia [Not Recovered/Not Resolved]

NARRATIVE: CASE EVENT DATE: 2016
